FAERS Safety Report 21049508 (Version 6)
Quarter: 2022Q4

REPORT INFORMATION
  Report Type: Report from Study
  Country: US (occurrence: US)
  Receive Date: 20220706
  Receipt Date: 20221122
  Transmission Date: 20230112
  Serious: Yes (Hospitalization, Other)
  Sender: FDA-Public Use
  Company Number: US-ABBVIE-22K-163-4316572-00

PATIENT
  Sex: Male
  Weight: 88 kg

DRUGS (19)
  1. IMBRUVICA [Suspect]
     Active Substance: IBRUTINIB
     Indication: Chronic lymphocytic leukaemia
     Dosage: FORM STRENGTH: 420 MILLIGRAM
     Route: 048
     Dates: start: 20220217, end: 202203
  2. IMBRUVICA [Suspect]
     Active Substance: IBRUTINIB
     Indication: Chronic lymphocytic leukaemia
     Dosage: 420 MILLIGRAM
     Route: 048
     Dates: start: 20220214, end: 2022
  3. IMBRUVICA [Suspect]
     Active Substance: IBRUTINIB
     Indication: Chronic lymphocytic leukaemia
     Dosage: 420 MILLIGRAM
     Route: 048
     Dates: start: 20220210, end: 202202
  4. IMBRUVICA [Suspect]
     Active Substance: IBRUTINIB
     Indication: Chronic lymphocytic leukaemia
     Route: 048
     Dates: start: 20220217
  5. IMBRUVICA [Suspect]
     Active Substance: IBRUTINIB
     Indication: Chronic lymphocytic leukaemia
     Route: 048
     Dates: end: 202203
  6. IMBRUVICA [Suspect]
     Active Substance: IBRUTINIB
     Indication: Chronic lymphocytic leukaemia
     Route: 048
     Dates: start: 2022
  7. DOXYCYCLINE [Concomitant]
     Active Substance: DOXYCYCLINE
     Indication: Product used for unknown indication
  8. METOPROLOL [Concomitant]
     Active Substance: METOPROLOL
     Indication: Hypertension
  9. LOSARTAN [Concomitant]
     Active Substance: LOSARTAN
     Indication: Hypertension
  10. PFIZER-BIONTECH COVID-19 VACCINE [Concomitant]
     Active Substance: TOZINAMERAN
     Indication: COVID-19 immunisation
     Dosage: FIRST DOSE?1 IN 1 ONCE
     Route: 030
     Dates: start: 20210226, end: 20210226
  11. PFIZER-BIONTECH COVID-19 VACCINE [Concomitant]
     Active Substance: TOZINAMERAN
     Indication: COVID-19 immunisation
     Dosage: SECOND DOSE?1 IN 1 ONCE
     Route: 030
     Dates: start: 20210331, end: 20210331
  12. PFIZER-BIONTECH COVID-19 VACCINE [Concomitant]
     Active Substance: TOZINAMERAN
     Indication: COVID-19 immunisation
     Dosage: BOOSTER DOSE DOSE?1 IN 1 ONCE
     Route: 030
     Dates: start: 20211004, end: 20211004
  13. TYLENOL [Concomitant]
     Active Substance: ACETAMINOPHEN
     Indication: Peripheral swelling
  14. BENADRYL [Concomitant]
     Active Substance: DIPHENHYDRAMINE HYDROCHLORIDE
     Indication: Sinus headache
  15. CoVid 19 Vaccine [Concomitant]
     Indication: COVID-19 immunisation
     Dosage: PFIZER
     Route: 030
     Dates: start: 20211004, end: 20211004
  16. CoVid 19 Vaccine [Concomitant]
     Indication: COVID-19 immunisation
     Dosage: PFIZER
     Route: 030
     Dates: start: 20210226, end: 20210226
  17. CoVid 19 Vaccine [Concomitant]
     Indication: COVID-19 immunisation
     Dosage: PFIZER
     Route: 030
     Dates: start: 20210331, end: 20210331
  18. SODIUM CHLORIDE [Concomitant]
     Active Substance: SODIUM CHLORIDE
     Indication: Sinus headache
  19. MAGNESIUM [Suspect]
     Active Substance: MAGNESIUM
     Indication: Product used for unknown indication
     Route: 065

REACTIONS (49)
  - Scar [Unknown]
  - Melanocytic naevus [Not Recovered/Not Resolved]
  - Staphylococcal infection [Unknown]
  - Skin cancer [Unknown]
  - Paranasal sinus hypersecretion [Recovered/Resolved]
  - Sinus headache [Unknown]
  - Procedural haemorrhage [Unknown]
  - Precancerous cells present [Not Recovered/Not Resolved]
  - Increased upper airway secretion [Recovered/Resolved]
  - Limb discomfort [Unknown]
  - Impaired healing [Recovering/Resolving]
  - Skin haemorrhage [Not Recovered/Not Resolved]
  - Basal cell carcinoma [Unknown]
  - Upper-airway cough syndrome [Unknown]
  - Sinus disorder [Recovering/Resolving]
  - Renal injury [Unknown]
  - Rash macular [Unknown]
  - Skin haemorrhage [Unknown]
  - Allergy to animal [Unknown]
  - Sinus headache [Recovered/Resolved]
  - Investigation abnormal [Unknown]
  - Induration [Unknown]
  - Influenza like illness [Unknown]
  - Peripheral swelling [Unknown]
  - Shoulder operation [Unknown]
  - Purulence [Unknown]
  - Haemorrhagic diathesis [Unknown]
  - Peripheral swelling [Recovering/Resolving]
  - Pain in extremity [Recovering/Resolving]
  - Diarrhoea [Recovered/Resolved]
  - Decreased appetite [Unknown]
  - Increased tendency to bruise [Unknown]
  - Diarrhoea [Recovered/Resolved]
  - Myalgia [Unknown]
  - Arthralgia [Unknown]
  - Fatigue [Unknown]
  - Arthritis infective [Recovering/Resolving]
  - Infection [Unknown]
  - Muscle spasms [Unknown]
  - Pain [Unknown]
  - Muscle spasms [Unknown]
  - Anaemia [Unknown]
  - Cough [Unknown]
  - Sciatica [Unknown]
  - Multiple allergies [Unknown]
  - Flatulence [Recovered/Resolved]
  - White blood cell count decreased [Unknown]
  - Skin disorder [Not Recovered/Not Resolved]
  - Unevaluable event [Recovered/Resolved]

NARRATIVE: CASE EVENT DATE: 20220101
